FAERS Safety Report 9220027 (Version 1)
Quarter: 2013Q1

REPORT INFORMATION
  Report Type: Spontaneous
  Country: US (occurrence: None)
  Receive Date: 20120830
  Receipt Date: 20120830
  Transmission Date: 20140127
  Serious: Yes (Other)
  Sender: FDA-Public Use
  Company Number: US008563

PATIENT
  Age: 35 Month
  Sex: Male

DRUGS (2)
  1. GABITRIL (TIAGABINE) [Suspect]
     Indication: CONVULSION
     Route: 048
     Dates: start: 199811
  2. DILANTIN [Concomitant]

REACTIONS (3)
  - Convulsion [None]
  - Complex partial seizures [None]
  - Lethargy [None]
